FAERS Safety Report 12756499 (Version 4)
Quarter: 2018Q1

REPORT INFORMATION
  Report Type: Spontaneous
  Country: US (occurrence: US)
  Receive Date: 20160917
  Receipt Date: 20180207
  Transmission Date: 20180508
  Serious: Yes (Other)
  Sender: FDA-Public Use
  Company Number: US-ABBVIE-16P-163-1724064-00

PATIENT
  Age: 69 Year
  Sex: Female

DRUGS (2)
  1. HUMIRA [Suspect]
     Active Substance: ADALIMUMAB
     Indication: RHEUMATOID ARTHRITIS
     Route: 058
  2. HUMIRA [Suspect]
     Active Substance: ADALIMUMAB
     Indication: PSORIATIC ARTHROPATHY
     Route: 058

REACTIONS (10)
  - Surgery [Unknown]
  - Spinal operation [Unknown]
  - Spinal column stenosis [Unknown]
  - Nerve compression [Unknown]
  - Shoulder operation [Unknown]
  - Periarthritis [Unknown]
  - Limb injury [Unknown]
  - Musculoskeletal pain [Unknown]
  - Knee arthroplasty [Unknown]
  - Pain [Not Recovered/Not Resolved]
